FAERS Safety Report 25980866 (Version 1)
Quarter: 2025Q4

REPORT INFORMATION
  Report Type: Other
  Country: US (occurrence: US)
  Receive Date: 20251030
  Receipt Date: 20251030
  Transmission Date: 20260117
  Serious: Yes (Death, Life-Threatening, Hospitalization, Other)
  Sender: BRECKENRIDGE PHARMACEUTICAL, INC.
  Company Number: US-Breckenridge Pharmaceutical, Inc.-2187590

PATIENT
  Age: 73 Year
  Sex: Male
  Weight: 107 kg

DRUGS (7)
  1. APIXABAN [Suspect]
     Active Substance: APIXABAN
     Indication: Cardiovascular event prophylaxis
  2. ELIQUIS [Suspect]
     Active Substance: APIXABAN
  3. INSULIN NOS [Concomitant]
     Active Substance: INSULIN NOS
  4. FUROSEMIDE [Concomitant]
     Active Substance: FUROSEMIDE
  5. AMLODIPINE [Concomitant]
     Active Substance: AMLODIPINE BESYLATE
  6. METOPROLOL [Concomitant]
     Active Substance: METOPROLOL
  7. HYDRALAZINE [Concomitant]
     Active Substance: HYDRALAZINE HYDROCHLORIDE

REACTIONS (9)
  - Pleural effusion [Recovering/Resolving]
  - Death [Fatal]
  - Urinary tract infection [Unknown]
  - Sepsis [Fatal]
  - Acute respiratory failure [Fatal]
  - Seizure [Fatal]
  - Haemorrhage intracranial [Fatal]
  - End stage renal disease [Not Recovered/Not Resolved]
  - Pericardial effusion [Recovering/Resolving]
